FAERS Safety Report 8734111 (Version 3)
Quarter: 2012Q4

REPORT INFORMATION
  Report Type: 
  Country: US (occurrence: US)
  Receive Date: 20120821
  Receipt Date: 20121009
  Transmission Date: 20130627
  Serious: Yes (Other)
  Sender: FDA-Public Use
  Company Number: US-ROCHE-1065006

PATIENT
  Age: 45 None
  Sex: Male
  Weight: 86.26 kg

DRUGS (2)
  1. ACCUTANE [Suspect]
     Indication: ROSACEA
     Route: 065
     Dates: start: 200012
  2. ACCUTANE [Suspect]
     Indication: ACNE CYSTIC
     Route: 065
     Dates: start: 20021030, end: 20021223

REACTIONS (5)
  - Inflammatory bowel disease [Unknown]
  - Colitis ulcerative [Unknown]
  - Anxiety [Unknown]
  - Depression [Unknown]
  - Irritable bowel syndrome [Unknown]
